FAERS Safety Report 13588060 (Version 1)
Quarter: 2017Q2

REPORT INFORMATION
  Report Type: Spontaneous
  Country: US (occurrence: US)
  Receive Date: 20170527
  Receipt Date: 20170527
  Transmission Date: 20170830
  Serious: Yes (Other)
  Sender: FDA-Public Use
  Company Number: US-AMGEN-USASP2017078999

PATIENT
  Age: 75 Year
  Sex: Female

DRUGS (1)
  1. PROLIA [Suspect]
     Active Substance: DENOSUMAB
     Indication: PRODUCT USED FOR UNKNOWN INDICATION
     Dosage: UNK
     Route: 065

REACTIONS (6)
  - Joint swelling [Unknown]
  - Pain in extremity [Unknown]
  - Pain in jaw [Unknown]
  - Musculoskeletal pain [Unknown]
  - Arthralgia [Unknown]
  - Abasia [Unknown]

NARRATIVE: CASE EVENT DATE: 201703
